FAERS Safety Report 9704421 (Version 1)
Quarter: 2013Q4

REPORT INFORMATION
  Report Type: Spontaneous
  Country: US (occurrence: US)
  Receive Date: 20131122
  Receipt Date: 20131122
  Transmission Date: 20140711
  Serious: Yes (Other)
  Sender: FDA-Public Use
  Company Number: US-TEVA-445773USA

PATIENT
  Age: 73 Year
  Sex: Male

DRUGS (5)
  1. NAPROXEN [Suspect]
     Indication: ARTHRALGIA
     Route: 065
  2. FELDENE [Suspect]
     Indication: BACK PAIN
     Route: 065
  3. ASPIRIN [Concomitant]
     Route: 065
  4. FUROSEMIDE [Concomitant]
     Route: 065
  5. ATORVASTATIN [Concomitant]
     Route: 065

REACTIONS (1)
  - Glomerulonephritis membranous [Recovering/Resolving]
